FAERS Safety Report 15920170 (Version 1)
Quarter: 2019Q1

REPORT INFORMATION
  Report Type: Spontaneous
  Country: US (occurrence: US)
  Receive Date: 20190205
  Receipt Date: 20190205
  Transmission Date: 20190417
  Serious: No
  Sender: FDA-Public Use
  Company Number: US-PFIZER INC-2019043432

PATIENT
  Age: 54 Year
  Sex: Female
  Weight: 86 kg

DRUGS (5)
  1. NEURONTIN [Suspect]
     Active Substance: GABAPENTIN
     Indication: BURNING SENSATION
     Dosage: 1600 MG, 3X/DAY (800MG; TAKING 2 TABLETS AT A TIME, THREE TIMES A DAY)
  2. NEURONTIN [Suspect]
     Active Substance: GABAPENTIN
     Indication: PAIN
  3. METFORMIN [Concomitant]
     Active Substance: METFORMIN HYDROCHLORIDE
     Indication: DIABETES MELLITUS
     Dosage: 500 MG, 2X/DAY (ONE IN THE MORNING AND ONE AT NIGHT)
  4. GABAPENTIN. [Suspect]
     Active Substance: GABAPENTIN
     Indication: BURNING SENSATION
  5. GABAPENTIN. [Suspect]
     Active Substance: GABAPENTIN
     Indication: PAIN
     Dosage: UNK

REACTIONS (3)
  - Insomnia [Unknown]
  - Pain in extremity [Unknown]
  - Drug ineffective for unapproved indication [Unknown]
